FAERS Safety Report 4999228-1 (Version None)
Quarter: 2006Q2

REPORT INFORMATION
  Report Type: 
  Country: None (occurrence: None)
  Receive Date: 20060509
  Receipt Date: 20060424
  Transmission Date: 20061013
  Serious: Yes (Death)
  Sender: FDA-Public Use
  Company Number: US200604003820

PATIENT
  Age: 65 Year
  Sex: Female

DRUGS (2)
  1. FORTEO [Suspect]
     Indication: CREST SYNDROME
     Dates: start: 20040701
  2. FORTEO [Concomitant]

REACTIONS (4)
  - CARDIAC ARREST [None]
  - PNEUMONIA [None]
  - RESPIRATORY ARREST [None]
  - SCLERODERMA [None]
